FAERS Safety Report 19607814 (Version 1)
Quarter: 2021Q3

REPORT INFORMATION
  Report Type: Spontaneous
  Country: MX (occurrence: MX)
  Receive Date: 20210726
  Receipt Date: 20210726
  Transmission Date: 20211014
  Serious: Yes (Other)
  Sender: FDA-Public Use
  Company Number: MX-AMGEN-MEXSP2021110956

PATIENT
  Age: 3 Year
  Sex: Male

DRUGS (8)
  1. BUSULFAN. [Concomitant]
     Active Substance: BUSULFAN
     Indication: ALLOGENIC STEM CELL TRANSPLANTATION
     Dosage: 1.2 MILLIGRAM/KILOGRAM, QD (ON DAYS ?7, ?6, ?5, AND ?4)
     Dates: start: 2018
  2. CYCLOPHOSPHAMIDE. [Concomitant]
     Active Substance: CYCLOPHOSPHAMIDE
     Indication: ALLOGENIC STEM CELL TRANSPLANTATION
     Dosage: 60 MILLIGRAM/KILOGRAM, QD (ON DAYS ?3 AND ?2,)
     Dates: start: 2018
  3. DEFERASIROX. [Concomitant]
     Active Substance: DEFERASIROX
     Indication: PROPHYLAXIS
  4. FILGRASTIM [Suspect]
     Active Substance: FILGRASTIM
     Indication: ALLOGENIC STEM CELL TRANSPLANTATION
     Dosage: UNK
     Route: 065
     Dates: start: 2018
  5. FILGRASTIM [Suspect]
     Active Substance: FILGRASTIM
     Indication: OFF LABEL USE
     Dosage: UNK (DOSE DECREASED)
     Route: 065
     Dates: start: 2018
  6. METHOTREXATE. [Concomitant]
     Active Substance: METHOTREXATE
     Indication: ALLOGENIC STEM CELL TRANSPLANTATION
     Dosage: (15 MG/M2 DAY +1 AND 10 MG/M2 DAY ON DAYS +1, + 3, +5, +7, AND +11)
     Dates: start: 2018
  7. CYCLOSPORINE. [Concomitant]
     Active Substance: CYCLOSPORINE
     Indication: BLOOD BILIRUBIN INCREASED
     Dosage: 3 MILLILITRE PER KILOGRAM, QD
     Dates: start: 2018
  8. ELTROMBOPAG [Concomitant]
     Active Substance: ELTROMBOPAG
     Indication: PLATELET COUNT DECREASED
     Dosage: UNK
     Dates: start: 2018

REACTIONS (5)
  - Off label use [Unknown]
  - Hypercalcaemia [Recovered/Resolved]
  - Graft versus host disease [Recovered/Resolved]
  - Pneumonitis [Recovered/Resolved]
  - Hyperphosphataemia [Recovered/Resolved]

NARRATIVE: CASE EVENT DATE: 2018
